FAERS Safety Report 8444719-4 (Version None)
Quarter: 2012Q2

REPORT INFORMATION
  Report Type: 
  Country: None (occurrence: None)
  Receive Date: 20120611
  Receipt Date: 20120604
  Transmission Date: 20120825
  Serious: Yes (Death, Other)
  Sender: FDA-Public Use
  Company Number: WAES 1205USA04622

PATIENT

DRUGS (3)
  1. CAP VORINOSTAT [Suspect]
     Indication: ACUTE MYELOID LEUKAEMIA
     Dosage: //PO
     Route: 048
  2. GEMTUZUMAB OZOGAMICIN [Suspect]
     Indication: ACUTE MYELOID LEUKAEMIA
  3. VIDAZA [Suspect]
     Indication: ACUTE MYELOID LEUKAEMIA

REACTIONS (8)
  - INFECTION [None]
  - TOXICITY TO VARIOUS AGENTS [None]
  - PANCYTOPENIA [None]
  - SEPSIS [None]
  - RESPIRATORY FAILURE [None]
  - HYPOALBUMINAEMIA [None]
  - RENAL FAILURE ACUTE [None]
  - FEBRILE NEUTROPENIA [None]
